FAERS Safety Report 6295378-0 (Version None)
Quarter: 2009Q3

REPORT INFORMATION
  Report Type: 
  Country: None (occurrence: None)
  Receive Date: 20090803
  Receipt Date: 20090720
  Transmission Date: 20100115
  Serious: Yes (Disabling)
  Sender: FDA-Public Use
  Company Number: IE-MYLANLABS-2009S1013080

PATIENT
  Age: 62 Year
  Sex: Female

DRUGS (1)
  1. GERTAC /00550801/ [Suspect]
     Indication: LOWER RESPIRATORY TRACT INFECTION
     Route: 065

REACTIONS (6)
  - ASTHENIA [None]
  - DEPRESSION [None]
  - DRUG HYPERSENSITIVITY [None]
  - DYSGEUSIA [None]
  - HEADACHE [None]
  - SOMNOLENCE [None]
